FAERS Safety Report 12679959 (Version 1)
Quarter: 2016Q3

REPORT INFORMATION
  Report Type: Spontaneous
  Country: GB (occurrence: None)
  Receive Date: 20160823
  Receipt Date: 20160823
  Transmission Date: 20161109
  Serious: Yes (Hospitalization)
  Sender: FDA-Public Use
  Company Number: GB2016K3988SPO

PATIENT
  Age: 86 Year
  Sex: Female
  Weight: 57 kg

DRUGS (3)
  1. INSULIN [Concomitant]
     Active Substance: INSULIN NOS
  2. GABAPENTIN (GABAPENTIN) [Suspect]
     Active Substance: GABAPENTIN
     Indication: NEURALGIA
     Route: 048
  3. LANSOPRAZOLE GENERIC (LANSOPRAZOLE) UNKNOWN [Suspect]
     Active Substance: LANSOPRAZOLE
     Route: 048

REACTIONS (4)
  - Stress [None]
  - Acute kidney injury [None]
  - Nephropathy toxic [None]
  - Dehydration [None]

NARRATIVE: CASE EVENT DATE: 20160715
